FAERS Safety Report 4912836-9 (Version None)
Quarter: 2006Q1

REPORT INFORMATION
  Report Type: 
  Country: None (occurrence: None)
  Receive Date: 20060210
  Receipt Date: 20060127
  Transmission Date: 20060701
  Serious: Yes (Life-Threatening)
  Sender: FDA-Public Use
  Company Number: B0408280A

PATIENT
  Age: 6 Year
  Sex: Male

DRUGS (2)
  1. ALKERAN [Suspect]
     Dosage: INTRAVENOUS
     Route: 042
  2. THIOTEPA [Concomitant]

REACTIONS (5)
  - HEPATIC VEIN OCCLUSION [None]
  - MUCOUS MEMBRANE DISORDER [None]
  - PYREXIA [None]
  - RECURRENT CANCER [None]
  - STEM CELL TRANSPLANT [None]
